FAERS Safety Report 18803076 (Version 2)
Quarter: 2021Q1

REPORT INFORMATION
  Report Type: Report from Study
  Country: US (occurrence: US)
  Receive Date: 20210129
  Receipt Date: 20210226
  Transmission Date: 20210419
  Serious: No
  Sender: FDA-Public Use
  Company Number: US-ACADIA PHARMACEUTICALS INC.-ACA-2021-PIM-000027

PATIENT
  Age: 51 Year
  Sex: Female

DRUGS (1)
  1. NUPLAZID [Suspect]
     Active Substance: PIMAVANSERIN TARTRATE
     Indication: PARKINSON^S DISEASE
     Dosage: 34 MILLIGRAM, QD
     Route: 048
     Dates: start: 20201211

REACTIONS (10)
  - Delusion [Unknown]
  - Feeling abnormal [Unknown]
  - Heart rate increased [Unknown]
  - Drug ineffective [Unknown]
  - Hallucination [Unknown]
  - Disturbance in attention [Unknown]
  - Dry mouth [Unknown]
  - Drug ineffective [Unknown]
  - Condition aggravated [Unknown]
  - Anxiety [Unknown]

NARRATIVE: CASE EVENT DATE: 202012
